FAERS Safety Report 21291202 (Version 2)
Quarter: 2022Q4

REPORT INFORMATION
  Report Type: Spontaneous
  Country: US (occurrence: US)
  Receive Date: 20220903
  Receipt Date: 20221001
  Transmission Date: 20230112
  Serious: No
  Sender: FDA-Public Use
  Company Number: US-drreddys-SPO/USA/22/0153861

PATIENT
  Sex: Male

DRUGS (2)
  1. QUETIAPINE FUMARATE [Suspect]
     Active Substance: QUETIAPINE FUMARATE
     Indication: Depression
  2. PERPHENAZINE [Suspect]
     Active Substance: PERPHENAZINE
     Indication: Depression

REACTIONS (2)
  - Dyskinesia [Unknown]
  - Muscle rigidity [Unknown]
